FAERS Safety Report 4352913-7 (Version None)
Quarter: 2004Q2

REPORT INFORMATION
  Report Type: 
  Country: None (occurrence: None)
  Receive Date: 20040428
  Receipt Date: 20040406
  Transmission Date: 20050107
  Serious: Yes (Other)
  Sender: FDA-Public Use
  Company Number: WAES 0404GBR00065

PATIENT
  Age: 81 Year
  Sex: Male

DRUGS (8)
  1. LOSARTAN POTASSIUM [Suspect]
     Indication: CARDIAC FAILURE
     Dosage: SEE IMAGE
     Route: 048
     Dates: start: 20030806, end: 20040301
  2. LOSARTAN POTASSIUM [Suspect]
     Indication: CARDIAC FAILURE
     Dosage: SEE IMAGE
     Route: 048
     Dates: start: 20040301
  3. PROPECIA [Concomitant]
  4. ACETAMINOPHEN/CODEINE PHOSPHATE [Concomitant]
  5. ASPIRIN [Concomitant]
  6. BISOPROLOL [Concomitant]
  7. FUROSEMDIE [Concomitant]
  8. ZOLPIDEM TARTRATE [Concomitant]

REACTIONS (3)
  - BLOOD ELECTROLYTES ABNORMAL [None]
  - BLOOD UREA ABNORMAL [None]
  - MACROCYTOSIS [None]
